FAERS Safety Report 7950321-0 (Version None)
Quarter: 2011Q4

REPORT INFORMATION
  Report Type: 
  Country: None (occurrence: None)
  Receive Date: 20111130
  Receipt Date: 20111117
  Transmission Date: 20120403
  Serious: Yes (Hospitalization)
  Sender: FDA-Public Use
  Company Number: FR-ELI_LILLY_AND_COMPANY-FR201111005893

PATIENT
  Sex: Female

DRUGS (5)
  1. VIDAZA [Concomitant]
     Indication: ACUTE MYELOID LEUKAEMIA
     Dosage: 115 MG, WEEKLY (1/W)
     Route: 058
     Dates: start: 20091102
  2. BROMAZEPAM [Concomitant]
     Dosage: UNK
     Route: 048
  3. ZOFRAN [Concomitant]
     Indication: PROPHYLAXIS OF NAUSEA AND VOMITING
     Dosage: UNK
     Route: 048
     Dates: start: 20091102
  4. PROZAC [Suspect]
     Indication: DEPRESSION
     Dosage: 20 UG, QD
     Route: 048
     Dates: start: 20091228
  5. DUPHALAC [Concomitant]
     Indication: CONSTIPATION
     Dosage: UNK
     Route: 048
     Dates: start: 20100606

REACTIONS (1)
  - ATRIAL FLUTTER [None]
